FAERS Safety Report 10241673 (Version 1)
Quarter: 2014Q2

REPORT INFORMATION
  Report Type: Spontaneous
  Country: FR (occurrence: FR)
  Receive Date: 20140617
  Receipt Date: 20140617
  Transmission Date: 20141212
  Serious: Yes (Life-Threatening, Hospitalization)
  Sender: FDA-Public Use
  Company Number: FR-PFIZER INC-2014164014

PATIENT
  Age: 52 Year
  Sex: Female

DRUGS (8)
  1. EFFEXOR [Suspect]
     Dosage: UNK
     Route: 048
     Dates: end: 20140316
  2. TERCIAN [Suspect]
     Dosage: UNK
     Route: 048
     Dates: end: 20140316
  3. DIAMICRON [Concomitant]
     Dosage: UNK
  4. ONGLYZA [Concomitant]
     Dosage: UNK
  5. THERALENE [Concomitant]
     Dosage: UNK
     Route: 048
  6. DAIVOBET [Concomitant]
     Dosage: UNK
  7. EFFERALGAN [Concomitant]
     Dosage: UNK
  8. GLUCOPHAGE [Concomitant]
     Dosage: UNK

REACTIONS (3)
  - Coma [Recovered/Resolved]
  - Serotonin syndrome [Recovered/Resolved]
  - Neuroleptic malignant syndrome [Recovered/Resolved]
